FAERS Safety Report 6558083-9 (Version None)
Quarter: 2010Q1

REPORT INFORMATION
  Report Type: 
  Country: None (occurrence: None)
  Receive Date: 20100129
  Receipt Date: 20100127
  Transmission Date: 20100710
  Serious: Yes (Hospitalization)
  Sender: FDA-Public Use
  Company Number: A0693973A

PATIENT

DRUGS (19)
  1. LAPATINIB [Suspect]
     Dosage: 1500MG PER DAY
     Route: 048
     Dates: start: 20071030
  2. CISPLATIN [Suspect]
     Dosage: 100MGM2 CYCLIC
     Route: 042
     Dates: start: 20071106
  3. RADIOTHERAPY [Suspect]
     Dosage: 4GY VARIABLE DOSE
     Route: 061
     Dates: start: 20071106
  4. ATENOLOL [Concomitant]
     Indication: HYPERTENSION
     Dosage: 50MG PER DAY
     Route: 048
  5. NICARDIA [Concomitant]
     Indication: HYPERTENSION
     Dosage: 10MG PER DAY
     Route: 048
     Dates: start: 20081110, end: 20081110
  6. DOMSTAL [Concomitant]
     Route: 048
     Dates: start: 20081111, end: 20081114
  7. LASIX [Concomitant]
     Indication: FLUID RETENTION
     Dosage: 20MG SINGLE DOSE
     Route: 042
     Dates: start: 20081113, end: 20081113
  8. HEXIDINE [Concomitant]
     Route: 061
     Dates: start: 20081115, end: 20081116
  9. CANDID MOUTH PAINT [Concomitant]
     Indication: DENTAL CARE
     Route: 061
     Dates: start: 20081115
  10. SODIUM BICARBONATE MOUTHWASH [Concomitant]
     Indication: DENTAL CARE
     Route: 048
     Dates: start: 20081117
  11. LOPERAMIDE [Concomitant]
     Route: 048
     Dates: start: 20081117, end: 20081117
  12. AMLONG [Concomitant]
     Indication: HYPERTENSION
     Dosage: 5MG PER DAY
     Route: 048
     Dates: start: 20071110
  13. DEXTROSE + NORMAL SALINE [Concomitant]
     Dosage: 500ML SINGLE DOSE
     Dates: start: 20071121, end: 20071121
  14. CIPLOX [Concomitant]
     Route: 048
     Dates: start: 20071122, end: 20071127
  15. METROGYL [Concomitant]
     Indication: INFECTION
     Route: 048
     Dates: start: 20071122, end: 20071126
  16. GLYCOMET [Concomitant]
     Dosage: 500MG TWICE PER DAY
     Route: 048
     Dates: start: 20071121
  17. WYSOLONE [Concomitant]
     Indication: INFLAMMATION
     Route: 048
     Dates: start: 20071127, end: 20071204
  18. PANTOPRAZOLE [Concomitant]
     Indication: PROPHYLAXIS
     Dosage: 20MG PER DAY
     Route: 048
     Dates: start: 20071127, end: 20071204
  19. RANITIDINE [Concomitant]
     Indication: PROPHYLAXIS
     Dosage: 150MG TWICE PER DAY
     Route: 048
     Dates: start: 20071126, end: 20071129

REACTIONS (10)
  - ABDOMINAL PAIN [None]
  - ASTHENIA [None]
  - AZOTAEMIA [None]
  - BLOOD CREATININE INCREASED [None]
  - BRADYCARDIA [None]
  - DIARRHOEA [None]
  - MUCOSAL INFLAMMATION [None]
  - NAUSEA [None]
  - RENAL IMPAIRMENT [None]
  - VOMITING [None]
